FAERS Safety Report 10815202 (Version 2)
Quarter: 2015Q1

REPORT INFORMATION
  Report Type: Report from Study
  Country: US (occurrence: US)
  Receive Date: 20150218
  Receipt Date: 20150225
  Transmission Date: 20150721
  Serious: Yes (Death, Other)
  Sender: FDA-Public Use
  Company Number: US-CELGENE-USA-2015022397

PATIENT

DRUGS (3)
  1. REVLIMID [Suspect]
     Active Substance: LENALIDOMIDE
     Route: 048
  2. RITUXIMAB [Suspect]
     Active Substance: RITUXIMAB
     Indication: NON-HODGKIN^S LYMPHOMA
     Route: 041
  3. REVLIMID [Suspect]
     Active Substance: LENALIDOMIDE
     Indication: NON-HODGKIN^S LYMPHOMA
     Route: 048

REACTIONS (25)
  - Infusion related reaction [Unknown]
  - Rash [Unknown]
  - Upper respiratory tract infection [Unknown]
  - Eye irritation [Unknown]
  - Thrombocytopenia [Unknown]
  - Thrombosis [Unknown]
  - Vomiting [Unknown]
  - Non-Hodgkin^s lymphoma [Unknown]
  - Dizziness [Unknown]
  - Nausea [Unknown]
  - Dyspnoea [Unknown]
  - Oedema [Unknown]
  - Thyroid disorder [Unknown]
  - Pyrexia [Unknown]
  - Neuropathy peripheral [Unknown]
  - Diarrhoea [Unknown]
  - Myalgia [Unknown]
  - Mucosal inflammation [Unknown]
  - Memory impairment [Unknown]
  - Neutropenia [Unknown]
  - Anaemia [Unknown]
  - Death [Fatal]
  - Cough [Unknown]
  - Fatigue [Unknown]
  - Constipation [Unknown]
